FAERS Safety Report 13999031 (Version 1)
Quarter: 2017Q3

REPORT INFORMATION
  Report Type: Spontaneous
  Country: US (occurrence: US)
  Receive Date: 20170922
  Receipt Date: 20170922
  Transmission Date: 20171128
  Serious: Yes (Other)
  Sender: FDA-Public Use
  Company Number: None

PATIENT
  Age: 33 Year
  Sex: Female
  Weight: 56.25 kg

DRUGS (1)
  1. RELIEF PURE EPTSOM SALT BODY CREAM [Suspect]
     Active Substance: MAGNESIUM SULFATE
     Indication: SKIN DISORDER
     Dates: start: 20170919

REACTIONS (1)
  - Pruritus [None]

NARRATIVE: CASE EVENT DATE: 20170919
